FAERS Safety Report 4641925-1 (Version None)
Quarter: 2005Q2

REPORT INFORMATION
  Report Type: 
  Country: None (occurrence: None)
  Receive Date: 20050421
  Receipt Date: 20050407
  Transmission Date: 20051028
  Serious: Yes (Other)
  Sender: FDA-Public Use
  Company Number: 2005057039

PATIENT
  Sex: Male
  Weight: 94.8018 kg

DRUGS (13)
  1. CELEBREX [Suspect]
     Indication: PAIN
     Dosage: 400 MG (200 MG, 2 IN 1 D), ORAL
     Route: 048
     Dates: end: 20030101
  2. PREDNISONE [Concomitant]
  3. HYDROCODONE BITARTRATE [Concomitant]
  4. POTASSIUM ACETATE [Concomitant]
  5. INDOMETHACIN [Concomitant]
  6. FUROSEMIDE [Concomitant]
  7. THEOPHYLLINE [Concomitant]
  8. ALENDRONATE SODIUM [Concomitant]
  9. PANTOPRAZOLE (PANTOPRAZOLE) [Concomitant]
  10. ESOMEPRAZOLE (ESOMEPRAZOLE) [Concomitant]
  11. BUDESONIDE [Concomitant]
  12. ALBUTEROL SULFATE HFA [Concomitant]
  13. IPRATROPIUM BROMIDE [Concomitant]

REACTIONS (7)
  - ASTHMA [None]
  - BRONCHOSPASM [None]
  - CONDITION AGGRAVATED [None]
  - DYSPNOEA [None]
  - JOINT SWELLING [None]
  - OEDEMA PERIPHERAL [None]
  - SINUS OPERATION [None]
